FAERS Safety Report 15800746 (Version 1)
Quarter: 2019Q1

REPORT INFORMATION
  Report Type: Report from Study
  Country: None (occurrence: DE)
  Receive Date: 20190109
  Receipt Date: 20190109
  Transmission Date: 20190417
  Serious: Yes (Hospitalization, Other)
  Sender: FDA-Public Use
  Company Number: DE-ABBVIE-18K-062-2493111-00

PATIENT
  Age: 70 Year
  Sex: Female
  Weight: 106 kg

DRUGS (2)
  1. HUMIRA [Suspect]
     Active Substance: ADALIMUMAB
     Indication: PSORIATIC ARTHROPATHY
  2. HUMIRA [Suspect]
     Active Substance: ADALIMUMAB
     Indication: PSORIASIS
     Route: 058
     Dates: start: 20090218

REACTIONS (2)
  - Terminal state [Unknown]
  - Pancreatic carcinoma [Not Recovered/Not Resolved]

NARRATIVE: CASE EVENT DATE: 20180806
